FAERS Safety Report 4718222-9 (Version None)
Quarter: 2005Q3

REPORT INFORMATION
  Report Type: 
  Country: None (occurrence: None)
  Receive Date: 20050719
  Receipt Date: 20050419
  Transmission Date: 20060218
  Serious: Yes (Other)
  Sender: FDA-Public Use
  Company Number: A-US2004-07275

PATIENT
  Age: 81 Year
  Sex: Female
  Weight: 54.9 kg

DRUGS (11)
  1. TRACLEER [Suspect]
     Indication: PULMONARY HYPERTENSION
     Dosage: SEE IMAGE
     Route: 048
     Dates: start: 20040726, end: 20040826
  2. TRACLEER [Suspect]
     Indication: PULMONARY HYPERTENSION
     Dosage: SEE IMAGE
     Route: 048
     Dates: start: 20040827, end: 20040911
  3. TRACLEER [Suspect]
     Indication: PULMONARY HYPERTENSION
     Dosage: SEE IMAGE
     Route: 048
     Dates: start: 20040914, end: 20041001
  4. SYNTHROID [Concomitant]
  5. MACROBID [Concomitant]
  6. ALPRAZOLAM [Concomitant]
  7. CATAPRES [Concomitant]
  8. KLOR-CON [Concomitant]
  9. FUROSEMIDE [Concomitant]
  10. SULINDAC [Concomitant]
  11. IRON (IRON) [Concomitant]

REACTIONS (5)
  - CONTUSION [None]
  - FALL [None]
  - HYPOTENSION [None]
  - LIVER FUNCTION TEST ABNORMAL [None]
  - SYNCOPE [None]
